FAERS Safety Report 6813271-9 (Version None)
Quarter: 2010Q3

REPORT INFORMATION
  Report Type: 
  Country: None (occurrence: None)
  Receive Date: 20100701
  Receipt Date: 20100623
  Transmission Date: 20110219
  Serious: Yes (Other)
  Sender: FDA-Public Use
  Company Number: US-PFIZER INC-2010078672

PATIENT
  Sex: Female
  Weight: 86 kg

DRUGS (3)
  1. ALDACTONE [Suspect]
     Indication: DIURETIC THERAPY
     Dosage: 50 MG, DAILY
     Route: 048
     Dates: end: 20100601
  2. ENALAPRIL [Concomitant]
     Indication: HYPERTENSION
     Dosage: 5 MG, 2X/DAY
     Route: 048
  3. TYLENOL [Concomitant]
     Dosage: UNK

REACTIONS (9)
  - ARTHRITIS [None]
  - DYSPHAGIA [None]
  - FALL [None]
  - OROPHARYNGEAL PAIN [None]
  - PRURITUS [None]
  - RASH [None]
  - SWOLLEN TONGUE [None]
  - VERTIGO [None]
  - WEIGHT INCREASED [None]
